FAERS Safety Report 22722232 (Version 4)
Quarter: 2023Q4

REPORT INFORMATION
  Report Type: Spontaneous
  Country: JP (occurrence: JP)
  Receive Date: 20230719
  Receipt Date: 20231003
  Transmission Date: 20240109
  Serious: Yes (Disabling)
  Sender: FDA-Public Use
  Company Number: JP-CHUGAI-2023025153AA

PATIENT
  Age: 71 Year
  Sex: Female

DRUGS (3)
  1. VABYSMO [Suspect]
     Active Substance: FARICIMAB-SVOA
     Indication: Diabetic retinal oedema
     Dosage: 0.05 MILLILITER, QD, EYE OF ADMINISTRATION: RIGHT EYE
     Route: 031
     Dates: start: 20221107, end: 20221107
  2. VABYSMO [Suspect]
     Active Substance: FARICIMAB-SVOA
     Route: 031
     Dates: start: 20230605, end: 20230605
  3. GATIFLOXACIN SESQUIHYDRATE [Concomitant]
     Active Substance: GATIFLOXACIN
     Dosage: UNK
     Route: 047

REACTIONS (7)
  - Retinal artery occlusion [Not Recovered/Not Resolved]
  - Retinal occlusive vasculitis [Not Recovered/Not Resolved]
  - Conjunctivitis [Recovered/Resolved]
  - Scleritis [Recovered/Resolved]
  - Dry eye [Unknown]
  - Anterior chamber inflammation [Recovered/Resolved]
  - Punctate keratitis [Recovering/Resolving]

NARRATIVE: CASE EVENT DATE: 20230606
